FAERS Safety Report 10213402 (Version 1)
Quarter: 2014Q2

REPORT INFORMATION
  Report Type: Spontaneous
  Country: US (occurrence: None)
  Receive Date: 20140529
  Receipt Date: 20140529
  Transmission Date: 20141212
  Serious: Yes (Hospitalization, Other)
  Sender: FDA-Public Use
  Company Number: 2014AP003100

PATIENT
  Age: 33 Year
  Sex: Female

DRUGS (2)
  1. ZOLPIDEM TARTRATE [Suspect]
     Indication: INSOMNIA
     Route: 048
  2. CLONAZEPAM (CLONAZEPAM) [Concomitant]

REACTIONS (10)
  - Suicidal ideation [None]
  - Illusion [None]
  - Hallucination, visual [None]
  - Drug diversion [None]
  - Paranoia [None]
  - Depressed mood [None]
  - Hallucination, auditory [None]
  - Overdose [None]
  - Eye movement disorder [None]
  - Tremor [None]
